FAERS Safety Report 7786400-0 (Version None)
Quarter: 2011Q3

REPORT INFORMATION
  Report Type: 
  Country: None (occurrence: None)
  Receive Date: 20110928
  Receipt Date: 20110928
  Transmission Date: 20111222
  Serious: No
  Sender: FDA-Public Use
  Company Number: None

PATIENT
  Sex: Female
  Weight: 65.7716 kg

DRUGS (2)
  1. NEXAVAR [Suspect]
     Indication: SARCOMA
     Dosage: 200MG BID PO
     Route: 048
     Dates: start: 20110827, end: 20110927
  2. RAPAMUNE [Suspect]
     Indication: SARCOMA
     Dosage: 2 MG (6 MG) QD PO
     Route: 048
     Dates: start: 20110827, end: 20110927

REACTIONS (1)
  - URTICARIA [None]
